FAERS Safety Report 9186247 (Version 1)
Quarter: 2013Q1

REPORT INFORMATION
  Report Type: Spontaneous
  Country: US (occurrence: None)
  Receive Date: 20120628
  Receipt Date: 20120628
  Transmission Date: 20140127
  Serious: Yes (Other)
  Sender: FDA-Public Use
  Company Number: PHEH2011US05616

PATIENT
  Age: 56 Year
  Sex: Female

DRUGS (2)
  1. RECLAST [Suspect]
     Indication: OSTEOPOROSIS
     Dosage: UNK,  INTRAVENOUS
     Dates: start: 20101205
  2. PREMARIN (ESTROGENS CONJUGATED ) [Concomitant]

REACTIONS (4)
  - Pyrexia [None]
  - Myalgia [None]
  - Chills [None]
  - Abasia [None]
